FAERS Safety Report 8654634 (Version 3)
Quarter: 2013Q4

REPORT INFORMATION
  Report Type: Spontaneous
  Country: US (occurrence: US)
  Receive Date: 20120709
  Receipt Date: 20131205
  Transmission Date: 20140711
  Serious: Yes (Hospitalization)
  Sender: FDA-Public Use
  Company Number: US-PFIZER INC-2012161462

PATIENT
  Age: 56 Year
  Sex: Male
  Weight: 83 kg

DRUGS (2)
  1. CHANTIX [Suspect]
     Indication: SMOKING CESSATION THERAPY
     Dosage: UNK
     Dates: start: 20100101
  2. CHANTIX [Suspect]
     Dosage: 1 MG, 2X/DAY (CONTINUING MONTH PACK)
     Dates: start: 20110603, end: 20110625

REACTIONS (4)
  - Depression [Unknown]
  - Mood swings [Unknown]
  - Psychotic disorder [Unknown]
  - Mental disorder [Unknown]
